FAERS Safety Report 17263408 (Version 1)
Quarter: 2020Q1

REPORT INFORMATION
  Report Type: Report from Study
  Country: US (occurrence: US)
  Receive Date: 20200113
  Receipt Date: 20200113
  Transmission Date: 20200409
  Serious: Yes (Hospitalization)
  Sender: FDA-Public Use
  Company Number: NVSC2020US005151

PATIENT
  Sex: Female

DRUGS (1)
  1. AFINITOR [Suspect]
     Active Substance: EVEROLIMUS
     Indication: PRODUCT USED FOR UNKNOWN INDICATION
     Dosage: UNK
     Route: 065

REACTIONS (8)
  - Ill-defined disorder [Unknown]
  - Abnormal behaviour [Unknown]
  - Eye disorder [Unknown]
  - Nausea [Unknown]
  - Blood glucose increased [Unknown]
  - Hypertension [Unknown]
  - Joint stiffness [Unknown]
  - Speech disorder [Unknown]
